FAERS Safety Report 8474056-3 (Version None)
Quarter: 2012Q2

REPORT INFORMATION
  Report Type: 
  Country: None (occurrence: None)
  Receive Date: 20120628
  Receipt Date: 20111018
  Transmission Date: 20120825
  Serious: Yes (Life-Threatening, Other)
  Sender: FDA-Public Use
  Company Number: US-MYLANLABS-2011S1001849

PATIENT
  Age: 49 Year
  Sex: Male

DRUGS (9)
  1. COGENTIN [Concomitant]
  2. CHEMOTHERAPEUTICS [Suspect]
  3. CLOZAPINE [Suspect]
     Indication: PSYCHOTIC DISORDER
     Route: 048
     Dates: end: 20110427
  4. CLOZAPINE [Suspect]
     Route: 048
     Dates: start: 20110501
  5. CLOZAPINE [Suspect]
     Route: 048
     Dates: start: 20110428, end: 20110501
  6. CLOZAPINE [Suspect]
     Indication: SCHIZOPHRENIA
     Route: 048
     Dates: end: 20110427
  7. HALDOL [Concomitant]
  8. CLOZAPINE [Suspect]
     Route: 048
     Dates: start: 20110428, end: 20110501
  9. CLOZAPINE [Suspect]
     Route: 048
     Dates: start: 20110501

REACTIONS (3)
  - AGRANULOCYTOSIS [None]
  - GRANULOCYTOPENIA [None]
  - LEUKOPENIA [None]
